FAERS Safety Report 11334432 (Version 2)
Quarter: 2016Q3

REPORT INFORMATION
  Report Type: Report from Study
  Country: US (occurrence: US)
  Receive Date: 20150804
  Receipt Date: 20160831
  Transmission Date: 20161109
  Serious: Yes (Life-Threatening, Other)
  Sender: FDA-Public Use
  Company Number: US-ROCHE-ITM201506IM017644

PATIENT
  Age: 68 Year
  Sex: Male
  Weight: 105.33 kg

DRUGS (17)
  1. VENTOLIN HFA [Concomitant]
     Active Substance: ALBUTEROL SULFATE
     Dosage: 108 (90 BASE) MCG/ACT?2 PUFFS EVERY DAY/AS NEEDED
     Route: 065
     Dates: start: 20131112
  2. NAC 600 AKUT [Concomitant]
     Route: 048
     Dates: start: 20131112
  3. OXYGEN. [Concomitant]
     Active Substance: OXYGEN
     Dosage: 1 UNIT?2LPM AT REST ?3LPM AT EXERTION
     Route: 065
  4. ESBRIET [Suspect]
     Active Substance: PIRFENIDONE
     Indication: IDIOPATHIC PULMONARY FIBROSIS
     Route: 048
  5. VITAMIN B12 [Concomitant]
     Active Substance: CYANOCOBALAMIN
     Route: 065
  6. LORATADINE. [Concomitant]
     Active Substance: LORATADINE
     Route: 048
  7. PREDNISONE. [Concomitant]
     Active Substance: PREDNISONE
     Dosage: 60 MG DAILY FOR 2 DAYS?40 MG DAILY FOR 3 DAYS?30 MG DAILY FOR 3 DAYS?20 MG DAILY FOR 3 DAYS?10 MG DA
     Route: 065
     Dates: start: 20150413
  8. NASONEX [Concomitant]
     Active Substance: MOMETASONE FUROATE
     Dosage: 50MCG/ACT?1 UNIT ONCE/DAY/EACH NARE
     Route: 065
     Dates: start: 20131112
  9. ESBRIET [Suspect]
     Active Substance: PIRFENIDONE
     Dosage: 2 CAPSULES
     Route: 048
     Dates: start: 20150413
  10. ESBRIET [Suspect]
     Active Substance: PIRFENIDONE
     Dosage: 2 CAPSULES THREE TIMES A DAY
     Route: 048
     Dates: start: 20150506
  11. CRESTOR [Concomitant]
     Active Substance: ROSUVASTATIN CALCIUM
     Route: 048
  12. PROTONIX [Concomitant]
     Active Substance: PANTOPRAZOLE SODIUM
     Dosage: TABLETS DR
     Route: 065
  13. ROBITUSSIN DM [Concomitant]
     Active Substance: DEXTROMETHORPHAN HYDROBROMIDE\GUAIFENESIN
     Dosage: 100-10 MG/5ML
     Route: 065
  14. ASPIR 81 [Concomitant]
     Route: 048
  15. ADVAIR HFA [Concomitant]
     Active Substance: FLUTICASONE PROPIONATE\SALMETEROL XINAFOATE
     Dosage: 250-50 MCG/DOSE?1 PUFF TWICE A DAY
     Route: 065
     Dates: start: 20131112
  16. CARBAMAZEPINE. [Concomitant]
     Active Substance: CARBAMAZEPINE
     Dosage: 1 TAB QAM , 2 TABLETS QHS (AT BEDTIME)
     Route: 065
  17. MECLIZINE HCL [Concomitant]
     Active Substance: MECLIZINE HYDROCHLORIDE
     Route: 065

REACTIONS (4)
  - Suicidal ideation [Recovering/Resolving]
  - Gastrointestinal disorder [Unknown]
  - Malaise [Unknown]
  - Depression [Unknown]

NARRATIVE: CASE EVENT DATE: 20150511
